FAERS Safety Report 23015721 (Version 2)
Quarter: 2023Q4

REPORT INFORMATION
  Report Type: Report from Study
  Country: US (occurrence: US)
  Receive Date: 20231002
  Receipt Date: 20231108
  Transmission Date: 20240110
  Serious: Yes (Life-Threatening, Other)
  Sender: FDA-Public Use
  Company Number: US-MYLANLABS-2023M1102708

PATIENT
  Sex: Female
  Weight: 72.57 kg

DRUGS (1)
  1. GLATIRAMER ACETATE [Suspect]
     Active Substance: GLATIRAMER ACETATE
     Indication: Multiple sclerosis
     Dosage: 40 MILLIGRAM, 3XW
     Route: 058

REACTIONS (7)
  - Anaphylactoid reaction [Unknown]
  - Tunnel vision [Unknown]
  - Injection site pain [Unknown]
  - Injection site urticaria [Unknown]
  - Anxiety [Unknown]
  - Injection site reaction [Unknown]
  - Product after taste [Unknown]
